FAERS Safety Report 4987551-6 (Version None)
Quarter: 2006Q2

REPORT INFORMATION
  Report Type: 
  Country: None (occurrence: None)
  Receive Date: 20060501
  Receipt Date: 20051003
  Transmission Date: 20061013
  Serious: Yes (Hospitalization)
  Sender: FDA-Public Use
  Company Number: US-MERCK-0510USA02590

PATIENT
  Age: 49 Year
  Sex: Female
  Weight: 36 kg

DRUGS (1)
  1. VIOXX [Suspect]
     Indication: OSTEOARTHRITIS
     Route: 048
     Dates: start: 20010101, end: 20030101

REACTIONS (10)
  - BACK DISORDER [None]
  - CELLULITIS [None]
  - CONTUSION [None]
  - CORONARY ARTERY DISEASE [None]
  - CSF TEST ABNORMAL [None]
  - FALL [None]
  - HYPERTENSION [None]
  - INTRACRANIAL HYPOTENSION [None]
  - ISCHAEMIC STROKE [None]
  - WOUND INFECTION [None]
